FAERS Safety Report 5388133-7 (Version None)
Quarter: 2007Q3

REPORT INFORMATION
  Report Type: 
  Country: None (occurrence: None)
  Receive Date: 20070716
  Receipt Date: 20061208
  Transmission Date: 20080115
  Serious: No
  Sender: FDA-Public Use
  Company Number: A0630721A

PATIENT
  Age: 55 Year
  Sex: Male

DRUGS (1)
  1. NICORETTE (MINT) [Suspect]
     Dates: start: 20061107, end: 20061122

REACTIONS (11)
  - ABNORMAL DREAMS [None]
  - ANXIETY [None]
  - BLOOD PRESSURE INCREASED [None]
  - DIARRHOEA [None]
  - DISCOMFORT [None]
  - FATIGUE [None]
  - HEART RATE INCREASED [None]
  - INSOMNIA [None]
  - INTENTIONAL DRUG MISUSE [None]
  - NERVOUSNESS [None]
  - OVERDOSE [None]
